FAERS Safety Report 9620392 (Version 2)
Quarter: 2013Q4

REPORT INFORMATION
  Report Type: Spontaneous
  Country: US (occurrence: US)
  Receive Date: 20131015
  Receipt Date: 20131015
  Transmission Date: 20140711
  Serious: Yes (Hospitalization)
  Sender: FDA-Public Use
  Company Number: -SAAVPROD-BMS16096539

PATIENT
  Sex: Female

DRUGS (1)
  1. AVALIDE [Suspect]
     Dosage: PILLS.1DF=AVALIDE 150/12.5 MG FOR MANY YEARS

REACTIONS (2)
  - Hypertension [Unknown]
  - Headache [Unknown]
